FAERS Safety Report 4704487-6 (Version None)
Quarter: 2005Q2

REPORT INFORMATION
  Report Type: 
  Country: None (occurrence: None)
  Receive Date: 20050628
  Receipt Date: 20050609
  Transmission Date: 20051028
  Serious: Yes (Death)
  Sender: FDA-Public Use
  Company Number: GBS050316870

PATIENT
  Age: 45 Year
  Sex: Male

DRUGS (3)
  1. CYMBALTA [Suspect]
     Indication: DEPRESSION
     Dosage: 60 MG
     Dates: start: 20050201
  2. INSULIN [Concomitant]
  3. VENLAFAXINE HCL [Concomitant]

REACTIONS (2)
  - LOSS OF EMPLOYMENT [None]
  - MYOCARDIAL INFARCTION [None]
